FAERS Safety Report 15353027 (Version 3)
Quarter: 2018Q4

REPORT INFORMATION
  Report Type: Spontaneous
  Country: US (occurrence: US)
  Receive Date: 20180905
  Receipt Date: 20181226
  Transmission Date: 20190204
  Serious: Yes (Other)
  Sender: FDA-Public Use
  Company Number: US-JNJFOC-20180839303

PATIENT
  Age: 84 Year
  Sex: Male
  Weight: 80.74 kg

DRUGS (6)
  1. XARELTO [Suspect]
     Active Substance: RIVAROXABAN
     Indication: PULMONARY THROMBOSIS
     Route: 048
     Dates: start: 2014, end: 2014
  2. ALLEGRA [Concomitant]
     Active Substance: FEXOFENADINE HYDROCHLORIDE
     Route: 065
  3. PRAVASTATIN. [Concomitant]
     Active Substance: PRAVASTATIN
     Indication: TRANSIENT ISCHAEMIC ATTACK
     Dosage: DAILY AT NIGHT
     Route: 065
     Dates: start: 2009
  4. ASPIRIN. [Suspect]
     Active Substance: ASPIRIN
     Indication: TRANSIENT ISCHAEMIC ATTACK
     Dosage: LOW DOSE
     Route: 065
     Dates: start: 2009
  5. ZYRTEC [Concomitant]
     Active Substance: CETIRIZINE HYDROCHLORIDE
     Indication: RASH
     Route: 048
     Dates: start: 201807
  6. XARELTO [Suspect]
     Active Substance: RIVAROXABAN
     Indication: PULMONARY THROMBOSIS
     Dosage: ONCE A DAY IN MORNING
     Route: 048
     Dates: start: 201401

REACTIONS (10)
  - Rash erythematous [Recovered/Resolved]
  - Weight decreased [Not Recovered/Not Resolved]
  - Anaemia [Not Recovered/Not Resolved]
  - Product lot number issue [Unknown]
  - Pulmonary oedema [Recovered/Resolved]
  - Skin haemorrhage [Recovered/Resolved]
  - Oropharyngeal pain [Unknown]
  - Body height decreased [Not Recovered/Not Resolved]
  - Blood urine present [Not Recovered/Not Resolved]
  - Microscopic polyangiitis [Not Recovered/Not Resolved]

NARRATIVE: CASE EVENT DATE: 2015
